FAERS Safety Report 25677829 (Version 1)
Quarter: 2025Q3

REPORT INFORMATION
  Report Type: Spontaneous
  Country: TW (occurrence: TW)
  Receive Date: 20250813
  Receipt Date: 20250813
  Transmission Date: 20251021
  Serious: Yes (Other)
  Sender: BAUSCH AND LOMB
  Company Number: TW-BAUSCH-BH-2025-015969

PATIENT
  Sex: Female

DRUGS (2)
  1. BRODALUMAB [Suspect]
     Active Substance: BRODALUMAB
     Indication: Psoriasis
     Route: 065
  2. ACITRETIN [Concomitant]
     Active Substance: ACITRETIN
     Indication: Psoriasis
     Route: 048

REACTIONS (2)
  - Peripheral T-cell lymphoma unspecified [Recovering/Resolving]
  - Haemophagocytic lymphohistiocytosis [Recovering/Resolving]
